FAERS Safety Report 22519537 (Version 1)
Quarter: 2023Q2

REPORT INFORMATION
  Report Type: Spontaneous
  Country: GB (occurrence: GB)
  Receive Date: 20230605
  Receipt Date: 20230605
  Transmission Date: 20230721
  Serious: Yes (Other)
  Sender: FDA-Public Use
  Company Number: GB-MHRA-MED-202305281927291810-HGRLM

PATIENT
  Age: 74 Year
  Sex: Female
  Weight: 51 kg

DRUGS (3)
  1. METRONIDAZOLE [Suspect]
     Active Substance: METRONIDAZOLE
     Indication: Peritonsillar abscess
     Dosage: 1200 MILLIGRAM DAILY; METRONIDAZOLE 400MG 3 TIMES A DAY, CLARITHROMYCIN 500MG TWICE A DAY
     Route: 065
     Dates: start: 20230505, end: 20230515
  2. CLARITHROMYCIN [Suspect]
     Active Substance: CLARITHROMYCIN
     Indication: Peritonsillar abscess
     Dosage: 1000 MILLIGRAM DAILY; METRONIDAZOLE 400MG 3 TIMES A DAY, CLARITHROMYCIN 500MG TWICE A DAY
     Route: 065
     Dates: start: 20230505, end: 20230515
  3. BENZYDAMINE HYDROCHLORIDE [Concomitant]
     Active Substance: BENZYDAMINE HYDROCHLORIDE
     Indication: Peritonsillar abscess
     Dates: start: 20230505, end: 20230513

REACTIONS (2)
  - Psychomotor hyperactivity [Recovered/Resolved]
  - Tremor [Recovered/Resolved]

NARRATIVE: CASE EVENT DATE: 20230506
